FAERS Safety Report 21121024 (Version 3)
Quarter: 2022Q3

REPORT INFORMATION
  Report Type: Spontaneous
  Country: US (occurrence: US)
  Receive Date: 20220722
  Receipt Date: 20220901
  Transmission Date: 20221026
  Serious: No
  Sender: FDA-Public Use
  Company Number: US-PFIZER INC-202200992115

PATIENT
  Age: 49 Year
  Sex: Male
  Weight: 104.33 kg

DRUGS (5)
  1. PAXLOVID [Suspect]
     Active Substance: NIRMATRELVIR\RITONAVIR
     Indication: COVID-19 treatment
     Dosage: UNK
     Dates: start: 20220717, end: 20220720
  2. CARBAMAZEPINE [Suspect]
     Active Substance: CARBAMAZEPINE
     Indication: Epilepsy
     Dosage: 200 MG
  3. PHENOBARBITAL [Suspect]
     Active Substance: PHENOBARBITAL
     Indication: Epilepsy
     Dosage: 32.4 MG
  4. BANZEL [Concomitant]
     Active Substance: RUFINAMIDE
     Indication: Epilepsy
     Dosage: 400 MG
  5. FELBAMATE [Concomitant]
     Active Substance: FELBAMATE
     Indication: Epilepsy
     Dosage: 400 MG

REACTIONS (3)
  - Contraindicated product administered [Unknown]
  - Gait disturbance [Recovered/Resolved]
  - Speech disorder [Recovered/Resolved]

NARRATIVE: CASE EVENT DATE: 20220717
